FAERS Safety Report 8052373-9 (Version None)
Quarter: 2012Q1

REPORT INFORMATION
  Report Type: 
  Country: None (occurrence: None)
  Receive Date: 20120118
  Receipt Date: 20120113
  Transmission Date: 20120608
  Serious: Yes (Death, Other)
  Sender: FDA-Public Use
  Company Number: US-BRISTOL-MYERS SQUIBB COMPANY-16261083

PATIENT
  Age: 18 Year
  Sex: Male
  Weight: 124 kg

DRUGS (2)
  1. ABILIFY [Suspect]
     Indication: AUTISM
     Dosage: INTERRUPTED ON MAY11-OCT11
     Route: 048
     Dates: start: 20091001, end: 20111101
  2. PROZAC [Suspect]
     Indication: AUTISM

REACTIONS (2)
  - DEATH [None]
  - CONVULSION [None]
